FAERS Safety Report 5524262-2 (Version None)
Quarter: 2007Q4

REPORT INFORMATION
  Report Type: 
  Country: None (occurrence: None)
  Receive Date: 20071121
  Receipt Date: 20071110
  Transmission Date: 20080405
  Serious: Yes (Other)
  Sender: FDA-Public Use
  Company Number: AU-PFIZER INC-2007095051

PATIENT
  Age: 35 Year
  Sex: Female

DRUGS (1)
  1. ZOLOFT [Suspect]
     Indication: POSTPARTUM DEPRESSION

REACTIONS (11)
  - AGITATION [None]
  - AKATHISIA [None]
  - CRYING [None]
  - INTENTIONAL SELF-INJURY [None]
  - JOINT INJURY [None]
  - MEDIAN NERVE INJURY [None]
  - MOOD SWINGS [None]
  - MULTIPLE DRUG OVERDOSE [None]
  - PANIC ATTACK [None]
  - PERSONALITY CHANGE [None]
  - SUICIDAL IDEATION [None]
